FAERS Safety Report 6690380-9 (Version None)
Quarter: 2010Q2

REPORT INFORMATION
  Report Type: 
  Country: None (occurrence: None)
  Receive Date: 20100421
  Receipt Date: 20100413
  Transmission Date: 20101027
  Serious: Yes (Other)
  Sender: FDA-Public Use
  Company Number: TR-ELI_LILLY_AND_COMPANY-TR201004004591

PATIENT
  Age: 58 Year
  Sex: Female

DRUGS (3)
  1. HUMALOG MIX 75/25 [Suspect]
     Indication: DIABETES MELLITUS
     Dosage: 24 IU, EACH MORNING
     Route: 058
     Dates: start: 20100201
  2. HUMALOG MIX 75/25 [Suspect]
     Dosage: 14 IU, EACH EVENING
     Route: 058
     Dates: start: 20100201
  3. ORAL ANTIDIABETICS [Concomitant]
     Indication: DIABETES MELLITUS
     Dosage: UNK, DAILY (1/D)
     Route: 048

REACTIONS (3)
  - BLOOD GLUCOSE DECREASED [None]
  - BLOOD GLUCOSE INCREASED [None]
  - COMA [None]
